FAERS Safety Report 15883683 (Version 1)
Quarter: 2019Q1

REPORT INFORMATION
  Report Type: Spontaneous
  Country: PL (occurrence: PL)
  Receive Date: 20190129
  Receipt Date: 20190129
  Transmission Date: 20190417
  Serious: Yes (Hospitalization, Other)
  Sender: FDA-Public Use
  Company Number: PHHY2019PL015512

PATIENT
  Age: 65 Year
  Sex: Male

DRUGS (1)
  1. AMOXICILLIN + CLAVULANATE POTASSIUM [Suspect]
     Active Substance: AMOXICILLIN\CLAVULANATE POTASSIUM
     Indication: ANTIBIOTIC PROPHYLAXIS
     Dosage: UNK
     Route: 065

REACTIONS (18)
  - Arthralgia [Unknown]
  - Drug hypersensitivity [Unknown]
  - Toxic epidermal necrolysis [Recovered/Resolved]
  - Pain [Unknown]
  - Skin oedema [Recovered/Resolved]
  - Back pain [Recovered/Resolved]
  - Spondylitis [Unknown]
  - Peripheral swelling [Unknown]
  - Gait disturbance [Unknown]
  - Dermatitis [Unknown]
  - Pruritus [Recovered/Resolved]
  - Erythema [Recovered/Resolved]
  - Hypochromic anaemia [Unknown]
  - Skin lesion [Recovered/Resolved]
  - Purulence [Recovered/Resolved]
  - Spinal pain [Unknown]
  - Muscle oedema [Unknown]
  - Rash [Recovered/Resolved]
